FAERS Safety Report 4753234-0 (Version None)
Quarter: 2005Q3

REPORT INFORMATION
  Report Type: 
  Country: None (occurrence: None)
  Receive Date: 20050826
  Receipt Date: 20050817
  Transmission Date: 20060218
  Serious: Yes (Other)
  Sender: FDA-Public Use
  Company Number: IT-ABBOTT-05P-083-0309135-00

PATIENT
  Age: 29 Year
  Sex: Female

DRUGS (5)
  1. CYCLOSPORINE [Suspect]
     Indication: IMMUNOSUPPRESSANT DRUG THERAPY
     Route: 042
     Dates: start: 19900101
  2. CYCLOSPORINE [Suspect]
     Route: 048
  3. CYCLOSPORINE [Suspect]
  4. PREDNISONE TAB [Suspect]
     Indication: STEROID THERAPY
     Route: 042
     Dates: start: 19900101
  5. PREDNISONE TAB [Suspect]
     Route: 048

REACTIONS (1)
  - COLITIS ULCERATIVE [None]
